FAERS Safety Report 15098279 (Version 1)
Quarter: 2018Q3

REPORT INFORMATION
  Report Type: Spontaneous
  Country: US (occurrence: US)
  Receive Date: 20180702
  Receipt Date: 20180702
  Transmission Date: 20181010
  Serious: Yes (Hospitalization)
  Sender: FDA-Public Use
  Company Number: US-GUERBET-US-20180167

PATIENT
  Age: 49 Year
  Sex: Female

DRUGS (1)
  1. DOTAREM [Suspect]
     Active Substance: GADOTERATE MEGLUMINE
     Indication: NUCLEAR MAGNETIC RESONANCE IMAGING BRAIN
     Dates: start: 20180619, end: 20180619

REACTIONS (6)
  - Swelling [Recovering/Resolving]
  - Throat irritation [Recovering/Resolving]
  - Eye swelling [Recovering/Resolving]
  - Feeling hot [Recovering/Resolving]
  - Respiration abnormal [Recovering/Resolving]
  - Erythema [Recovering/Resolving]

NARRATIVE: CASE EVENT DATE: 20180619
